FAERS Safety Report 10017267 (Version 1)
Quarter: 2014Q1

REPORT INFORMATION
  Report Type: Spontaneous
  Country: US (occurrence: None)
  Receive Date: 20140313
  Receipt Date: 20140313
  Transmission Date: 20141002
  Serious: Yes (Hospitalization, Disabling)
  Sender: FDA-Public Use
  Company Number: None

PATIENT
  Age: 82 Year
  Sex: Female
  Weight: 61.24 kg

DRUGS (1)
  1. ESTRACE CREAM [Suspect]
     Indication: URINARY TRACT INFECTION
     Dates: start: 20140310, end: 20140310

REACTIONS (1)
  - Hypertension [None]
